FAERS Safety Report 11272941 (Version 1)
Quarter: 2015Q2

REPORT INFORMATION
  Report Type: Spontaneous
  Country: US (occurrence: None)
  Receive Date: 20150625
  Receipt Date: 20150625
  Transmission Date: 20150821
  Serious: No
  Sender: FDA-Public Use
  Company Number: A-NJ2015-114487

PATIENT
  Age: 43 Year
  Sex: Female

DRUGS (2)
  1. VELETRI [Suspect]
     Active Substance: EPOPROSTENOL
     Indication: PULMONARY ARTERIAL HYPERTENSION
     Dosage: 30 NG/KG, PER MIN
     Route: 042
     Dates: start: 20130209
  2. OPSUMIT [Suspect]
     Active Substance: MACITENTAN
     Indication: PULMONARY ARTERIAL HYPERTENSION
     Route: 048
     Dates: start: 20141005

REACTIONS (13)
  - Abdominal pain [None]
  - Abdominal tenderness [None]
  - Dizziness [None]
  - Catheter site pain [None]
  - Presyncope [None]
  - Headache [None]
  - Abdominal distension [None]
  - Catheter site haemorrhage [None]
  - Catheter site oedema [None]
  - Catheter site rash [None]
  - Liver function test abnormal [None]
  - Catheter site bruise [None]
  - Eye swelling [None]

NARRATIVE: CASE EVENT DATE: 20150228
